FAERS Safety Report 8022904-3 (Version None)
Quarter: 2012Q1

REPORT INFORMATION
  Report Type: 
  Country: None (occurrence: None)
  Receive Date: 20120104
  Receipt Date: 20111230
  Transmission Date: 20120608
  Serious: Yes (Other)
  Sender: FDA-Public Use
  Company Number: PHEH2011US012795

PATIENT
  Age: 78 Year
  Sex: Female

DRUGS (19)
  1. METOPROLOL [Concomitant]
  2. VICODIN [Concomitant]
     Dosage: 500 MG, 4 X DAY
  3. ADVAIR DISKUS 100/50 [Concomitant]
     Dosage: 2 DF (2 PUMPS DAILY, 230/21 MCG), QD
  4. COMBIVENT [Concomitant]
     Indication: EMPHYSEMA
  5. COMBIVENT [Concomitant]
     Indication: ASTHMA
  6. SIMCOR (NICOTINIC ACID/SIMVASTATIN) [Concomitant]
     Indication: BLOOD CHOLESTEROL ABNORMAL
     Dosage: 1 DF (500/20 MG), QD
  7. IPRATROPIUM BROMIDE [Concomitant]
     Dosage: 5 MG, BID
  8. SINGULAIR [Concomitant]
     Dosage: 10 MG, UNK
  9. FUCCINATE [Concomitant]
     Indication: CARDIAC DISORDER
     Dosage: 25 MG, QD
  10. CITALOPRAM [Concomitant]
     Indication: DEPRESSION
     Dosage: 20 MG, QD
  11. RECLAST [Suspect]
     Dosage: UNK UKN, UNK
     Route: 042
  12. GLIMEPIRIDE [Concomitant]
     Indication: DIABETES MELLITUS
     Dosage: 2 MG, QD
  13. ALBUTEROL [Concomitant]
     Dosage: NEBULIZER ALBUTEROL 2.5
  14. DIOVAN [Concomitant]
     Dosage: 160 MG, QD
  15. LASIX [Concomitant]
     Indication: CARDIAC FAILURE CONGESTIVE
     Dosage: 40 MG, BID
  16. SPIRONOLACTONE [Concomitant]
     Indication: BLOOD PRESSURE ABNORMAL
  17. ASPIRIN [Concomitant]
     Dosage: 1 X DAY, QD
  18. BACLOFEN [Concomitant]
     Indication: MUSCLE SPASMS
     Dosage: 10 MG, 4 X DAY
  19. COMBIVENT [Concomitant]
     Indication: CHRONIC OBSTRUCTIVE PULMONARY DISEASE
     Dosage: 2 DF (2 PUFFS 3 OR 4 DAYS), UNK

REACTIONS (5)
  - CARDIAC DISORDER [None]
  - DYSPNOEA [None]
  - RENAL DISORDER [None]
  - VITAMIN D DEFICIENCY [None]
  - CARDIAC FAILURE CONGESTIVE [None]
